FAERS Safety Report 5774446-3 (Version None)
Quarter: 2008Q2

REPORT INFORMATION
  Report Type: 
  Country: None (occurrence: None)
  Receive Date: 20080616
  Receipt Date: 20080606
  Transmission Date: 20081010
  Serious: Yes (Life-Threatening)
  Sender: FDA-Public Use
  Company Number: ES-PFIZER INC-2008047599

PATIENT
  Age: 69 Year
  Sex: Female

DRUGS (3)
  1. CELEBREX [Suspect]
     Indication: TENDONITIS
     Route: 048
  2. ACETAMINOPHEN [Suspect]
     Indication: TENDONITIS
     Dosage: DAILY DOSE:3GRAM
     Route: 048
  3. HYDROCHLOROTHIAZIDE [Concomitant]
     Indication: HYPERTENSION
     Dosage: DAILY DOSE:50MG
     Route: 048

REACTIONS (4)
  - ANAPHYLACTIC SHOCK [None]
  - HYPERTENSION [None]
  - OEDEMA PERIPHERAL [None]
  - PULMONARY OEDEMA [None]
